FAERS Safety Report 6694658-4 (Version None)
Quarter: 2010Q2

REPORT INFORMATION
  Report Type: 
  Country: None (occurrence: None)
  Receive Date: 20100423
  Receipt Date: 20100414
  Transmission Date: 20101027
  Serious: Yes (Other)
  Sender: FDA-Public Use
  Company Number: GXKR2010JP04227

PATIENT
  Age: 89 Year
  Sex: Female
  Weight: 36 kg

DRUGS (10)
  1. PAROXETINE (NGX) [Suspect]
     Dosage: 20 MG/DAY (STARTED 50 DAYS BEFORE ADMISSION)
     Route: 065
  2. SPIRONOLACTONE (NGX) [Suspect]
     Dosage: 25 MG/DAY
     Route: 065
  3. SALINE [Suspect]
     Dosage: 1000 ML/DAY (HYPOTONIC SALINE) ADMINISTERED OVER 2 DAYS
     Route: 065
  4. MECOBALAMIN [Concomitant]
     Dosage: 1.5 MG/DAY
  5. LIMAPROST [Concomitant]
     Dosage: 15 UG/DAY
  6. AMLODIPINE [Concomitant]
     Dosage: 5 MG/DAY
  7. ETODOLAC [Concomitant]
     Dosage: 400 MG/DAY
  8. RALOXIFENE HCL [Concomitant]
     Dosage: 60 MG/DAY
  9. WATER [Concomitant]
     Dosage: 2000 ML/DAY
  10. WATER [Concomitant]
     Dosage: 1000 ML/DAY

REACTIONS (4)
  - DECREASED APPETITE [None]
  - HYPONATRAEMIA [None]
  - INAPPROPRIATE ANTIDIURETIC HORMONE SECRETION [None]
  - NAUSEA [None]
